FAERS Safety Report 16682296 (Version 2)
Quarter: 2019Q3

REPORT INFORMATION
  Report Type: Spontaneous
  Country: US (occurrence: US)
  Receive Date: 20190808
  Receipt Date: 20190919
  Transmission Date: 20191004
  Serious: Yes (Other)
  Sender: FDA-Public Use
  Company Number: US-PFIZER INC-2019339958

PATIENT
  Age: 68 Year
  Sex: Female

DRUGS (1)
  1. LYRICA [Suspect]
     Active Substance: PREGABALIN
     Indication: NERVE INJURY
     Dosage: 150 MG, 3X/DAY
     Route: 048

REACTIONS (13)
  - Insomnia [Unknown]
  - Sciatica [Unknown]
  - Withdrawal syndrome [Recovered/Resolved]
  - Pain [Unknown]
  - Pharyngeal injury [Unknown]
  - Eyelid function disorder [Unknown]
  - Eyelid injury [Unknown]
  - Facial paralysis [Unknown]
  - Back pain [Not Recovered/Not Resolved]
  - Sepsis [Unknown]
  - Pain in extremity [Not Recovered/Not Resolved]
  - Muscle rupture [Unknown]
  - Visual impairment [Unknown]
